FAERS Safety Report 9628534 (Version 2)
Quarter: 2013Q4

REPORT INFORMATION
  Report Type: Spontaneous
  Country: US (occurrence: US)
  Receive Date: 20131017
  Receipt Date: 20131111
  Transmission Date: 20140711
  Serious: Yes (Hospitalization, Other)
  Sender: FDA-Public Use
  Company Number: US-AMGEN-USASP2013072059

PATIENT
  Age: 59 Year
  Sex: Male
  Weight: 136.5 kg

DRUGS (1)
  1. SENSIPAR [Suspect]
     Indication: HYPERPARATHYROIDISM SECONDARY
     Dosage: 30 MG, QD
     Route: 048
     Dates: start: 20130730, end: 20130812

REACTIONS (4)
  - Neuropathy peripheral [Unknown]
  - Local swelling [Unknown]
  - Cellulitis [Unknown]
  - Diarrhoea [Recovered/Resolved]
